FAERS Safety Report 8329701-X (Version None)
Quarter: 2012Q2

REPORT INFORMATION
  Report Type: 
  Country: None (occurrence: None)
  Receive Date: 20120502
  Receipt Date: 20120426
  Transmission Date: 20120825
  Serious: Yes (Other)
  Sender: FDA-Public Use
  Company Number: GB-GLAXOSMITHKLINE-B0787622A

PATIENT
  Age: 70 Year
  Sex: Female

DRUGS (2)
  1. ACITRETIN [Suspect]
     Indication: SQUAMOUS CELL CARCINOMA
     Route: 048
     Dates: start: 20040504, end: 20080101
  2. ACITRETIN [Suspect]
     Route: 048
     Dates: start: 20080601, end: 20120221

REACTIONS (2)
  - BLINDNESS [None]
  - VISUAL FIELD DEFECT [None]
